FAERS Safety Report 7103437 (Version 2)
Quarter: 2019Q1

REPORT INFORMATION
  Report Type: Spontaneous
  Country: GB (occurrence: GB)
  Receive Date: 20090902
  Receipt Date: 20190227
  Transmission Date: 20190418
  Serious: Yes (Other)
  Sender: FDA-Public Use
  Company Number: GB-PFIZER INC-2009257224

PATIENT
  Age: 59 Year
  Sex: Male

DRUGS (4)
  1. PERINDOPRIL [Concomitant]
     Active Substance: PERINDOPRIL
  2. SIMVASTATIN. [Concomitant]
     Active Substance: SIMVASTATIN
  3. CHAMPIX [Suspect]
     Active Substance: VARENICLINE TARTRATE
     Indication: SMOKING CESSATION THERAPY
     Dosage: UNK
     Dates: start: 20090316, end: 20090406
  4. ASPIRIN ^BAYER^ [Concomitant]
     Active Substance: ASPIRIN

REACTIONS (2)
  - Hallucination, visual [Not Recovered/Not Resolved]
  - Hallucination, tactile [Not Recovered/Not Resolved]
